FAERS Safety Report 4582074-0 (Version None)
Quarter: 2005Q1

REPORT INFORMATION
  Report Type: 
  Country: None (occurrence: None)
  Receive Date: 20050119
  Receipt Date: 20040618
  Transmission Date: 20050727
  Serious: Yes (Hospitalization)
  Sender: FDA-Public Use
  Company Number: A03200401990

PATIENT
  Age: 72 Year
  Sex: Male
  Weight: 72.5755 kg

DRUGS (14)
  1. PLAVIX [Suspect]
     Indication: CORONARY ARTERY DISEASE
     Dosage: 75 MG QD - ORAL
     Route: 048
     Dates: start: 20030315
  2. PLAVIX [Suspect]
     Indication: STENT PLACEMENT
     Dosage: 75 MG QD - ORAL
     Route: 048
     Dates: start: 20030315
  3. ASPIRIN [Suspect]
     Indication: CORONARY ARTERY DISEASE
     Dosage: 325 MG QD - ORAL
     Route: 048
     Dates: start: 20030315
  4. ATORVASTTIN [Concomitant]
  5. METFORMIN HYDROCHLROIDE [Concomitant]
  6. LISINOPRIL [Concomitant]
  7. ALPRAZOLAM [Concomitant]
  8. ZOLPIDEM TARTRATE [Concomitant]
  9. ATENOLOL [Concomitant]
  10. OMEPRAZOLE [Concomitant]
  11. VITAMINS NOS [Concomitant]
  12. NITROGLYCERIN [Concomitant]
  13. DIGOXIN [Concomitant]
  14. ISOSORBIDE DINITRATE [Concomitant]

REACTIONS (2)
  - DRUG INEFFECTIVE [None]
  - STENT OCCLUSION [None]
